FAERS Safety Report 8607185 (Version 3)
Quarter: 2013Q3

REPORT INFORMATION
  Report Type: Spontaneous
  Country: US (occurrence: US)
  Receive Date: 20120611
  Receipt Date: 20130722
  Transmission Date: 20140515
  Serious: Yes (Hospitalization, Other)
  Sender: FDA-Public Use
  Company Number: US-ASTRAZENECA-2012SE35657

PATIENT
  Age: 24882 Day
  Sex: Male

DRUGS (13)
  1. NEXIUM [Suspect]
     Indication: GASTROOESOPHAGEAL REFLUX DISEASE
     Route: 048
     Dates: start: 1999, end: 2009
  2. NEXIUM [Suspect]
     Indication: GASTROOESOPHAGEAL REFLUX DISEASE
     Route: 048
     Dates: start: 2001, end: 2009
  3. NEXIUM [Suspect]
     Indication: GASTROOESOPHAGEAL REFLUX DISEASE
     Route: 048
     Dates: start: 20090529
  4. PRILOSEC [Suspect]
     Route: 048
  5. PRAVASTIN [Concomitant]
  6. PRAVACOL [Concomitant]
  7. ZANTAC [Concomitant]
  8. PEPCID [Concomitant]
  9. TUMS [Concomitant]
  10. MILK OF MAGNESIA [Concomitant]
  11. ROLAIDS [Concomitant]
  12. MYLANTA [Concomitant]
  13. POTASSIUM CL XR [Concomitant]

REACTIONS (20)
  - Pancreatitis chronic [Unknown]
  - Prostate cancer [Unknown]
  - Intestinal obstruction [Unknown]
  - Ulcer [Unknown]
  - Tuberculosis [Unknown]
  - Cardiac disorder [Unknown]
  - Osteoporosis [Unknown]
  - Multiple fractures [Unknown]
  - Bone pain [Unknown]
  - Bone disorder [Unknown]
  - Chronic obstructive pulmonary disease [Unknown]
  - Renal failure [Unknown]
  - Anxiety [Unknown]
  - Calcium deficiency [Unknown]
  - Cataract [Unknown]
  - Lung disorder [Unknown]
  - Arthritis [Unknown]
  - Bone density decreased [Unknown]
  - Rheumatoid arthritis [Unknown]
  - Androgen deficiency [Unknown]
